FAERS Safety Report 10048693 (Version 1)
Quarter: 2014Q1

REPORT INFORMATION
  Report Type: Spontaneous
  Country: US (occurrence: US)
  Receive Date: 20140331
  Receipt Date: 20140331
  Transmission Date: 20141002
  Serious: Yes (Other)
  Sender: FDA-Public Use
  Company Number: US-TEVA-472229USA

PATIENT
  Age: 36 Year
  Sex: Female
  Weight: 105.78 kg

DRUGS (4)
  1. PARAGARD 380A [Suspect]
     Indication: CONTRACEPTION
     Route: 015
     Dates: start: 20120530, end: 20140319
  2. TEGRETOL [Concomitant]
     Indication: CONVULSION
  3. ATENOLOL [Concomitant]
     Indication: HYPERTENSION
  4. TRANXENE [Concomitant]
     Indication: CONVULSION

REACTIONS (4)
  - Pregnancy with contraceptive device [Unknown]
  - Drug ineffective [Unknown]
  - Menstruation irregular [Recovered/Resolved]
  - Device expulsion [Recovered/Resolved]
